FAERS Safety Report 5228024-5 (Version None)
Quarter: 2007Q1

REPORT INFORMATION
  Report Type: 
  Country: None (occurrence: None)
  Receive Date: 20061205
  Receipt Date: 20060911
  Transmission Date: 20070707
  Serious: Yes (Other)
  Sender: FDA-Public Use
  Company Number: PHEH2006US10989

PATIENT
  Age: 78 Year
  Sex: Female
  Weight: 93.9 kg

DRUGS (1)
  1. EXJADE [Suspect]
     Indication: IRON OVERLOAD
     Dosage: 2000 MG, QD, ORAL
     Route: 048
     Dates: start: 20060814, end: 20060825

REACTIONS (3)
  - DIARRHOEA [None]
  - DYSPNOEA [None]
  - RASH ERYTHEMATOUS [None]
